FAERS Safety Report 15731139 (Version 1)
Quarter: 2018Q4

REPORT INFORMATION
  Report Type: Spontaneous
  Country: SE (occurrence: SE)
  Receive Date: 20181217
  Receipt Date: 20181217
  Transmission Date: 20190205
  Serious: Yes (Life-Threatening, Hospitalization, Other)
  Sender: FDA-Public Use
  Company Number: SE-SA-2014SA159609

PATIENT
  Age: 90 Year
  Sex: Female

DRUGS (12)
  1. ACETYLSALICYLIC ACID [Suspect]
     Active Substance: ASPIRIN
     Indication: MYOCARDIAL INFARCTION
     Dosage: 75 MG, QID
     Route: 048
     Dates: start: 20140806, end: 20140806
  2. PANODIL [Concomitant]
     Active Substance: ACETAMINOPHEN
     Indication: PAIN
  3. BETOLVEX [CYANOCOBALAMIN] [Concomitant]
  4. CLOPIDOGREL BISULFATE. [Suspect]
     Active Substance: CLOPIDOGREL BISULFATE
     Indication: MYOCARDIAL INFARCTION
     Dosage: UNK UNK,UNK
     Route: 048
     Dates: start: 20140806, end: 20140811
  5. PREDNISOLONE. [Concomitant]
     Active Substance: PREDNISOLONE
  6. ARIXTRA [Suspect]
     Active Substance: FONDAPARINUX SODIUM
     Indication: MYOCARDIAL INFARCTION
     Dosage: 2.5 MG, QD
     Route: 065
     Dates: start: 20140806, end: 20140808
  7. ACETYLSALICYLIC ACID [Suspect]
     Active Substance: ASPIRIN
     Dosage: 75 MG, QD
     Route: 048
     Dates: start: 20140807, end: 20140811
  8. LEVAXIN [Concomitant]
     Active Substance: LEVOTHYROXINE SODIUM
  9. SELOKEN [METOPROLOL TARTRATE] [Concomitant]
  10. LANZO [Concomitant]
     Active Substance: LANSOPRAZOLE
  11. SAROTEN [Concomitant]
     Active Substance: AMITRIPTYLINE
  12. XERODENT [MALIC ACID;SODIUM FLUORIDE] [Concomitant]

REACTIONS (2)
  - Cerebral haemorrhage [Not Recovered/Not Resolved]
  - Oesophageal candidiasis [Unknown]

NARRATIVE: CASE EVENT DATE: 20140811
